FAERS Safety Report 12500290 (Version 2)
Quarter: 2016Q3

REPORT INFORMATION
  Report Type: Spontaneous
  Country: US (occurrence: US)
  Receive Date: 20160627
  Receipt Date: 20160801
  Transmission Date: 20161109
  Serious: Yes (Other)
  Sender: FDA-Public Use
  Company Number: US-ELI_LILLY_AND_COMPANY-US201606005504

PATIENT
  Sex: Female

DRUGS (2)
  1. ADCIRCA [Suspect]
     Active Substance: TADALAFIL
     Indication: PRODUCT USED FOR UNKNOWN INDICATION
     Dosage: 20 MG, BID
     Route: 065
     Dates: start: 201605
  2. LETAIRIS [Interacting]
     Active Substance: AMBRISENTAN
     Indication: PRODUCT USED FOR UNKNOWN INDICATION
     Dosage: 10 MG, QD
     Route: 065
     Dates: start: 201605

REACTIONS (13)
  - Headache [Unknown]
  - Eye swelling [Unknown]
  - Bone pain [Unknown]
  - Chest discomfort [Unknown]
  - Pain in extremity [Unknown]
  - Dyspnoea [Unknown]
  - Rheumatoid arthritis [Unknown]
  - Pulmonary mass [Unknown]
  - Cough [Unknown]
  - Chills [Unknown]
  - Peripheral swelling [Unknown]
  - Upper-airway cough syndrome [Unknown]
  - Tremor [Unknown]
